FAERS Safety Report 4445256-4 (Version None)
Quarter: 2004Q3

REPORT INFORMATION
  Report Type: 
  Country: None (occurrence: None)
  Receive Date: 20040907
  Receipt Date: 20040820
  Transmission Date: 20050211
  Serious: Yes (Life-Threatening)
  Sender: FDA-Public Use
  Company Number: 04P-062-0271321-00

PATIENT
  Age: 74 Year
  Sex: Male
  Weight: 65 kg

DRUGS (8)
  1. ISOPTIN [Suspect]
     Indication: TACHYCARDIA
     Dates: start: 20040601, end: 20040601
  2. SPIRIVA [Suspect]
     Indication: CHRONIC OBSTRUCTIVE AIRWAYS DISEASE
     Dosage: 1 PUFF, 1 IN 1 D, INHALATION
     Route: 055
  3. NICOTINE [Suspect]
     Dosage: PER ORAL
     Route: 048
     Dates: start: 20040601
  4. OXIS TURBOHALER [Concomitant]
  5. DUOVENT [Concomitant]
  6. THEOPHYLLINE [Concomitant]
  7. ENALAPRIL MALEATE [Concomitant]
  8. URION S [Concomitant]

REACTIONS (2)
  - PSYCHOTIC DISORDER [None]
  - TACHYCARDIA [None]
